FAERS Safety Report 11938667 (Version 18)
Quarter: 2016Q3

REPORT INFORMATION
  Report Type: Spontaneous
  Country: US (occurrence: US)
  Receive Date: 20160122
  Receipt Date: 20160705
  Transmission Date: 20161109
  Serious: Yes (Hospitalization)
  Sender: FDA-Public Use
  Company Number: US-UNITED THERAPEUTICS-UNT-2016-000811

PATIENT
  Age: 47 Year
  Sex: Female
  Weight: 71.65 kg

DRUGS (55)
  1. ORENITRAM [Suspect]
     Active Substance: TREPROSTINIL
     Dosage: 17.5 MG, TOTAL DAILY DOSE
     Route: 048
  2. ORENITRAM [Suspect]
     Active Substance: TREPROSTINIL
     Dosage: 17.5 MG, QD
     Route: 048
  3. LETAIRIS [Suspect]
     Active Substance: AMBRISENTAN
     Dosage: UNK
  4. ACETYLSALICYLIC ACID [Suspect]
     Active Substance: ASPIRIN
     Indication: PRODUCT USED FOR UNKNOWN INDICATION
  5. DIGOXIN. [Concomitant]
     Active Substance: DIGOXIN
     Indication: PRODUCT USED FOR UNKNOWN INDICATION
     Dosage: 125 MCG, QD
     Route: 048
  6. ASCORBIC ACID. [Concomitant]
     Active Substance: ASCORBIC ACID
     Indication: PRODUCT USED FOR UNKNOWN INDICATION
     Dosage: 500 MG, QD
     Route: 048
  7. RANITIDINE. [Concomitant]
     Active Substance: RANITIDINE
     Indication: PRODUCT USED FOR UNKNOWN INDICATION
     Dosage: 300 MG, BID
  8. ORENITRAM [Suspect]
     Active Substance: TREPROSTINIL
     Dosage: 2.5 MG, UNK
  9. TRAMADOL. [Concomitant]
     Active Substance: TRAMADOL
     Indication: PRODUCT USED FOR UNKNOWN INDICATION
  10. FLUTICASONE [Concomitant]
     Active Substance: FLUTICASONE\FLUTICASONE PROPIONATE
     Indication: PRODUCT USED FOR UNKNOWN INDICATION
  11. METOLAZONE. [Concomitant]
     Active Substance: METOLAZONE
     Indication: OEDEMA
     Dosage: 5 MG, TAKE ONE TABLET DAILY AS NEEDED
     Route: 048
  12. PRILOSEC [Concomitant]
     Active Substance: OMEPRAZOLE MAGNESIUM
     Indication: PRODUCT USED FOR UNKNOWN INDICATION
     Dosage: 40 MG, TAKE ONE CAPSUE TWICE DAILY BEFORE A MEAL
     Route: 048
  13. OXYGEN. [Concomitant]
     Active Substance: OXYGEN
     Indication: PRODUCT USED FOR UNKNOWN INDICATION
     Dosage: INHALE 2.5 LITERS BY NASAL ROUTE ONCE
     Route: 045
  14. COLACE [Concomitant]
     Active Substance: DOCUSATE SODIUM
     Indication: PRODUCT USED FOR UNKNOWN INDICATION
     Dosage: 250 MG, TAKE ONCE CAPSULE TWICE DAILY AS NEEDED
     Route: 048
  15. ORENITRAM [Suspect]
     Active Substance: TREPROSTINIL
     Dosage: 2.5 MG, UD
     Route: 048
  16. LETAIRIS [Suspect]
     Active Substance: AMBRISENTAN
     Indication: PULMONARY HYPERTENSION
     Dosage: 10 MG, QD
     Route: 048
     Dates: start: 20110208
  17. CALCIUM [Concomitant]
     Active Substance: CALCIUM
     Indication: PRODUCT USED FOR UNKNOWN INDICATION
  18. VITAMIN B COMPLEX [Concomitant]
     Active Substance: CYANOCOBALAMIN\DEXPANTHENOL\NIACINAMIDE\PYRIDOXINE HYDROCHLORIDE\RIBOFLAVIN 5^-PHOSPHATE SODIUM\THIAMINE HYDROCHLORIDE\VITAMIN B COMPLEX
     Indication: PRODUCT USED FOR UNKNOWN INDICATION
  19. ONDANSETRAN [Concomitant]
     Active Substance: ONDANSETRON HYDROCHLORIDE
     Indication: PRODUCT USED FOR UNKNOWN INDICATION
     Dosage: 4 MG, ONCE EVERY 6 HOURS
     Route: 048
  20. XARELTO [Concomitant]
     Active Substance: RIVAROXABAN
     Indication: PRODUCT USED FOR UNKNOWN INDICATION
     Dosage: 10 MG, QD
  21. ACIPHEX [Concomitant]
     Active Substance: RABEPRAZOLE SODIUM
     Indication: PRODUCT USED FOR UNKNOWN INDICATION
  22. SINEMET [Concomitant]
     Active Substance: CARBIDOPA\LEVODOPA
     Indication: PRODUCT USED FOR UNKNOWN INDICATION
  23. ORENITRAM [Suspect]
     Active Substance: TREPROSTINIL
     Dosage: 2.5 MG, TID
     Route: 048
  24. LETAIRIS [Suspect]
     Active Substance: AMBRISENTAN
     Dosage: UNK
     Route: 065
  25. MORPHINE HYDROCHLORIDE [Concomitant]
     Active Substance: MORPHINE HYDROCHLORIDE
     Indication: PRODUCT USED FOR UNKNOWN INDICATION
     Dosage: 2 MG, UNK
  26. MELOXICAM. [Concomitant]
     Active Substance: MELOXICAM
     Indication: PRODUCT USED FOR UNKNOWN INDICATION
     Dosage: 7.5 MG, QD
     Route: 048
  27. ORENITRAM [Suspect]
     Active Substance: TREPROSTINIL
     Dosage: 7.5 MG, TID
     Route: 048
  28. LETAIRIS [Suspect]
     Active Substance: AMBRISENTAN
     Dosage: UNK
  29. REVATIO [Suspect]
     Active Substance: SILDENAFIL CITRATE
     Indication: PRODUCT USED FOR UNKNOWN INDICATION
     Dosage: 60 MG, TID
     Route: 048
     Dates: start: 201501
  30. VITAMIN B12 [Concomitant]
     Active Substance: CYANOCOBALAMIN
     Indication: PRODUCT USED FOR UNKNOWN INDICATION
  31. FERROUS GLUCONATE [Concomitant]
     Active Substance: FERROUS GLUCONATE
     Indication: PRODUCT USED FOR UNKNOWN INDICATION
     Dosage: APPLY TWO TIMES EVERY DAY A THIN LAYER TO THE AFFECTED AREAS
     Route: 061
  32. ORENITRAM [Suspect]
     Active Substance: TREPROSTINIL
     Dosage: 10 MG, TID
     Route: 048
  33. ORENITRAM [Suspect]
     Active Substance: TREPROSTINIL
     Dosage: 7.5 MG, Q8H
     Route: 048
  34. ALPRAZOLAM. [Concomitant]
     Active Substance: ALPRAZOLAM
     Indication: PRODUCT USED FOR UNKNOWN INDICATION
  35. ALDACTONE [Concomitant]
     Active Substance: SPIRONOLACTONE
     Indication: PRODUCT USED FOR UNKNOWN INDICATION
     Dosage: 50 MG, TAKE TWO TABLETS ONCE DAILY AS DIRECTED
     Route: 048
  36. IRON [Concomitant]
     Active Substance: IRON
     Indication: PRODUCT USED FOR UNKNOWN INDICATION
     Dosage: 225 MG, BID
  37. TORSEMIDE. [Concomitant]
     Active Substance: TORSEMIDE
     Indication: PRODUCT USED FOR UNKNOWN INDICATION
  38. INVANZ [Concomitant]
     Active Substance: ERTAPENEM SODIUM
     Indication: PRODUCT USED FOR UNKNOWN INDICATION
  39. ORENITRAM [Suspect]
     Active Substance: TREPROSTINIL
     Indication: PULMONARY HYPERTENSION
     Dosage: 2.5 MG, Q8H
     Route: 048
     Dates: start: 20151229, end: 20160309
  40. ORENITRAM [Suspect]
     Active Substance: TREPROSTINIL
     Dosage: 5 MG, TID
     Route: 048
     Dates: start: 20160307
  41. DEMADEX [Concomitant]
     Active Substance: TORSEMIDE
     Indication: PRODUCT USED FOR UNKNOWN INDICATION
     Dosage: 20 MG, TID
     Route: 048
  42. SYNTHROID [Concomitant]
     Active Substance: LEVOTHYROXINE SODIUM
     Indication: PRODUCT USED FOR UNKNOWN INDICATION
     Dosage: 100 MCG, QD
     Route: 048
  43. PROMETHAZINE [Concomitant]
     Active Substance: PROMETHAZINE\PROMETHAZINE HYDROCHLORIDE
     Indication: PRODUCT USED FOR UNKNOWN INDICATION
     Dosage: 25 MG, UNK
  44. BIOTIN [Concomitant]
     Active Substance: BIOTIN
     Indication: PRODUCT USED FOR UNKNOWN INDICATION
     Dosage: 2500 MCG, TAKE 2 BY ORAL ROUTE EVERY DAY
  45. CELEBREX [Concomitant]
     Active Substance: CELECOXIB
     Indication: PRODUCT USED FOR UNKNOWN INDICATION
     Dosage: 100 MG, TAKE ONE TABLET EVERYDAY
     Route: 048
  46. KLOR-CON [Concomitant]
     Active Substance: POTASSIUM CHLORIDE
     Indication: PRODUCT USED FOR UNKNOWN INDICATION
     Dosage: 20 MEQ, TID
  47. ATIVAN [Concomitant]
     Active Substance: LORAZEPAM
     Indication: PRODUCT USED FOR UNKNOWN INDICATION
  48. ORENITRAM [Suspect]
     Active Substance: TREPROSTINIL
     Dosage: 5MG, BID
     Route: 048
  49. LETAIRIS [Suspect]
     Active Substance: AMBRISENTAN
     Indication: DRUG ABUSE
     Dosage: 10 UNK, UNK
     Route: 065
     Dates: start: 20130404
  50. LETAIRIS [Suspect]
     Active Substance: AMBRISENTAN
     Dosage: UNK
  51. ELAVIL [Concomitant]
     Active Substance: AMITRIPTYLINE HYDROCHLORIDE
     Indication: PRODUCT USED FOR UNKNOWN INDICATION
     Dosage: 10 MG, TAKE 2 MORNING AND 3 AT NIGHT
  52. DIPHENHYDRAMINE. [Concomitant]
     Active Substance: DIPHENHYDRAMINE
     Indication: PRODUCT USED FOR UNKNOWN INDICATION
     Dosage: 25 MG, TAKE ONE TABLET TWO TIMES EVERY BEDTIME AS NEEDED
     Route: 048
  53. REQUIP [Concomitant]
     Active Substance: ROPINIROLE HYDROCHLORIDE
     Indication: PRODUCT USED FOR UNKNOWN INDICATION
     Dosage: 0.75 MG EVERY EVENING
  54. SIMVASTATIN. [Concomitant]
     Active Substance: SIMVASTATIN
     Indication: PRODUCT USED FOR UNKNOWN INDICATION
     Dosage: 10 MG, TAKE ONE TABLET BY EVERY EVENING
     Route: 048
  55. VITAMIN C [Concomitant]
     Active Substance: ASCORBIC ACID
     Indication: PRODUCT USED FOR UNKNOWN INDICATION

REACTIONS (32)
  - Clostridium difficile infection [Recovered/Resolved]
  - Influenza like illness [Recovered/Resolved]
  - Palpitations [Unknown]
  - Diarrhoea [Recovered/Resolved]
  - Flushing [Recovered/Resolved]
  - Post procedural haemorrhage [Unknown]
  - Drug administration error [Unknown]
  - Syncope [Recovered/Resolved]
  - Gastric ulcer [Not Recovered/Not Resolved]
  - Pain [Recovered/Resolved]
  - Urinary incontinence [Unknown]
  - Fatigue [Recovered/Resolved]
  - Drug interaction [Unknown]
  - Bladder disorder [Unknown]
  - Otorrhoea [Unknown]
  - Pain in jaw [Recovered/Resolved]
  - Dyspnoea [Unknown]
  - Hypotension [Recovered/Resolved]
  - Headache [Not Recovered/Not Resolved]
  - Vomiting [Recovered/Resolved]
  - Malaise [Recovered/Resolved]
  - Localised oedema [Recovered/Resolved]
  - Fluid retention [Recovered/Resolved]
  - Dizziness [Recovered/Resolved]
  - Muscle spasms [Not Recovered/Not Resolved]
  - Nausea [Recovered/Resolved]
  - Oedema peripheral [Recovered/Resolved]
  - Ascites [Unknown]
  - Dyspnoea exertional [Recovered/Resolved]
  - Drug intolerance [Recovered/Resolved]
  - Pleural effusion [Unknown]
  - Abdominal discomfort [Not Recovered/Not Resolved]

NARRATIVE: CASE EVENT DATE: 201601
